FAERS Safety Report 5181407-4 (Version None)
Quarter: 2006Q4

REPORT INFORMATION
  Report Type: 
  Country: None (occurrence: None)
  Receive Date: 20061220
  Receipt Date: 20060109
  Transmission Date: 20070319
  Serious: No
  Sender: FDA-Public Use
  Company Number: US-GLAXOSMITHKLINE-A0588300A

PATIENT
  Age: 56 Year
  Sex: Female

DRUGS (3)
  1. COMMIT [Suspect]
     Dates: start: 20060107
  2. SINGULAIR [Concomitant]
     Indication: ASTHMA
  3. INHALERS [Concomitant]
     Indication: ASTHMA

REACTIONS (1)
  - NAUSEA [None]
